FAERS Safety Report 19959589 (Version 1)
Quarter: 2021Q4

REPORT INFORMATION
  Report Type: Spontaneous
  Country: ES (occurrence: ES)
  Receive Date: 20211015
  Receipt Date: 20211015
  Transmission Date: 20220303
  Serious: Yes (Other)
  Sender: FDA-Public Use
  Company Number: ES-PFIZER INC-2021725268

PATIENT
  Age: 44 Year
  Sex: Female

DRUGS (8)
  1. VORICONAZOLE [Suspect]
     Active Substance: VORICONAZOLE
     Indication: Foreign body reaction
     Dosage: 400 MILLIGRAM, QD (200 MG, 2X/DAY [200 MG/12 H)
  2. LINEZOLID [Concomitant]
     Active Substance: LINEZOLID
     Indication: Foreign body reaction
     Dosage: 1200 MILLIGRAM, QD (600 MG, 2X/DAY [600 MG/12 H])
  3. MEROPENEM [Concomitant]
     Active Substance: MEROPENEM
     Indication: Foreign body reaction
     Dosage: 3 GRAM, QD (1 G, 3X/DAY [1 G/8 H])
  4. LACOSAMIDE [Concomitant]
     Active Substance: LACOSAMIDE
     Indication: Foreign body reaction
     Dosage: 300 MILLIGRAM, QD (150 MG, 2X/DAY [150 MG/12H])
  5. AMPHOTERICIN B [Concomitant]
     Active Substance: AMPHOTERICIN B
     Indication: Foreign body reaction
     Dosage: 5 MG/KG, 1X/DAY [5 MG/KG/24 H]
  6. PREDNISONE [Concomitant]
     Active Substance: PREDNISONE
     Indication: Foreign body reaction
     Dosage: 30 MG, 1X/DAY (30 MG/24 H)
  7. FLUCONAZOLE [Concomitant]
     Active Substance: FLUCONAZOLE
     Indication: Foreign body reaction
     Dosage: 800 MILLIGRAM, QD (400 MG, 2X/DAY [400 MG/12 H])
  8. DEXAMETHASONE [Concomitant]
     Active Substance: DEXAMETHASONE
     Indication: Foreign body reaction
     Dosage: 8 MILLIGRAM, QD (4 MG, 2X/DAY (4 MG/ 12 H)
     Route: 042

REACTIONS (1)
  - Cutaneous vasculitis [Unknown]
